FAERS Safety Report 6836351-0 (Version None)
Quarter: 2010Q3

REPORT INFORMATION
  Report Type: 
  Country: None (occurrence: None)
  Receive Date: 20100713
  Receipt Date: 20100702
  Transmission Date: 20110219
  Serious: Yes (Hospitalization, Disabling, Other)
  Sender: FDA-Public Use
  Company Number: US-MERCK-0911USA00160

PATIENT
  Age: 54 Year
  Sex: Female
  Weight: 75 kg

DRUGS (4)
  1. FOSAMAX [Suspect]
     Indication: BONE DISORDER
     Route: 048
     Dates: start: 19970401, end: 20080101
  2. FOSAMAX [Suspect]
     Route: 048
     Dates: start: 20070101, end: 20080401
  3. FOSAMAX [Suspect]
     Route: 048
     Dates: start: 20050607
  4. PREDNISONE [Suspect]
     Indication: CHRONIC OBSTRUCTIVE PULMONARY DISEASE
     Route: 065
     Dates: start: 19970401

REACTIONS (87)
  - ABDOMINAL WALL DISORDER [None]
  - ANGINA PECTORIS [None]
  - ANGIOPATHY [None]
  - ANXIETY [None]
  - AORTIC ANEURYSM [None]
  - ARTHRALGIA [None]
  - ARTHRITIS [None]
  - BONE DISORDER [None]
  - BRONCHITIS CHRONIC [None]
  - BURSITIS [None]
  - CARDIAC DISORDER [None]
  - CARDIAC MURMUR [None]
  - CATARACT [None]
  - CHILLS [None]
  - CHOLANGITIS ACUTE [None]
  - CHOLECYSTITIS ACUTE [None]
  - CHOLELITHIASIS [None]
  - CHONDROCALCINOSIS [None]
  - CHRONIC OBSTRUCTIVE PULMONARY DISEASE [None]
  - CORONARY ARTERY DISEASE [None]
  - COUGH [None]
  - DEEP VEIN THROMBOSIS [None]
  - DEPRESSION [None]
  - DERMATITIS CONTACT [None]
  - DEVICE FAILURE [None]
  - DIARRHOEA [None]
  - DIVERTICULUM [None]
  - DYSPHAGIA [None]
  - EMPHYSEMA [None]
  - EXOSTOSIS [None]
  - FALL [None]
  - FEELING ABNORMAL [None]
  - FEMUR FRACTURE [None]
  - FLATULENCE [None]
  - FOOT DEFORMITY [None]
  - FOOT FRACTURE [None]
  - FRACTURE DELAYED UNION [None]
  - FRACTURE NONUNION [None]
  - FUNGAL INFECTION [None]
  - GASTROOESOPHAGEAL REFLUX DISEASE [None]
  - HAEMORRHOIDS [None]
  - HEPATITIS [None]
  - HIATUS HERNIA [None]
  - HYPERTENSION [None]
  - HYPERTRIGLYCERIDAEMIA [None]
  - IMPAIRED HEALING [None]
  - INCREASED TENDENCY TO BRUISE [None]
  - IRRITABLE BOWEL SYNDROME [None]
  - KYPHOSIS [None]
  - LIPOHYPERTROPHY [None]
  - LOW TURNOVER OSTEOPATHY [None]
  - LOWER LIMB FRACTURE [None]
  - MUSCLE SPASMS [None]
  - MYOCARDIAL INFARCTION [None]
  - NASAL CONGESTION [None]
  - NAUSEA [None]
  - NERVOUSNESS [None]
  - NO THERAPEUTIC RESPONSE [None]
  - OBESITY [None]
  - OEDEMA PERIPHERAL [None]
  - OSTEOARTHRITIS [None]
  - OSTEOPENIA [None]
  - OSTEOPOROSIS [None]
  - PAIN IN EXTREMITY [None]
  - PERIPHERAL VASCULAR DISORDER [None]
  - PRODUCTIVE COUGH [None]
  - PYREXIA [None]
  - REFLUX GASTRITIS [None]
  - RENAL FAILURE [None]
  - RESPIRATORY DISORDER [None]
  - RESPIRATORY TRACT CONGESTION [None]
  - RESTLESS LEGS SYNDROME [None]
  - RHINITIS PERENNIAL [None]
  - RIB FRACTURE [None]
  - SINUS HEADACHE [None]
  - SINUSITIS [None]
  - SLEEP APNOEA SYNDROME [None]
  - SNORING [None]
  - SPINAL COMPRESSION FRACTURE [None]
  - SPINAL FRACTURE [None]
  - STOMATITIS [None]
  - STRESS FRACTURE [None]
  - TACHYCARDIA [None]
  - UPPER-AIRWAY COUGH SYNDROME [None]
  - URINARY TRACT INFECTION [None]
  - VOMITING [None]
  - WEIGHT DECREASED [None]
